FAERS Safety Report 4389059-8 (Version None)
Quarter: 2004Q2

REPORT INFORMATION
  Report Type: 
  Country: None (occurrence: None)
  Receive Date: 20040628
  Receipt Date: 20040617
  Transmission Date: 20050107
  Serious: Yes (Hospitalization)
  Sender: FDA-Public Use
  Company Number: 206095

PATIENT
  Age: 60 Year
  Sex: Male

DRUGS (6)
  1. EFALIZUMAB OR PLACEBO (EFALIZUMAB) [Suspect]
     Indication: PSORIASIS
     Dosage: SUBCUTANEOUS
     Route: 058
     Dates: start: 20030903, end: 20031120
  2. CYCLOPHOSPHAMIDE [Concomitant]
  3. METHYLPREDNISOLONE [Concomitant]
  4. CLARITHROMYCIN [Concomitant]
  5. KLINDAMYCIN (CLINDAMYCIN) [Concomitant]
  6. CEFUROXIME [Concomitant]

REACTIONS (6)
  - C-REACTIVE PROTEIN INCREASED [None]
  - HERPES ZOSTER [None]
  - PAIN [None]
  - PRURITUS [None]
  - SINUSITIS [None]
  - THROMBOCYTOPENIA [None]
